FAERS Safety Report 8506934-0 (Version None)
Quarter: 2012Q3

REPORT INFORMATION
  Report Type: 
  Country: None (occurrence: None)
  Receive Date: 20120712
  Receipt Date: 20120704
  Transmission Date: 20120928
  Serious: Yes (Hospitalization, Other)
  Sender: FDA-Public Use
  Company Number: CH-JNJFOC-20120608243

PATIENT
  Sex: Male
  Weight: 85 kg

DRUGS (9)
  1. ASPIRIN [Suspect]
     Indication: STENT PLACEMENT
     Dates: start: 20110301
  2. ASPIRIN [Suspect]
     Indication: CORONARY ARTERY DISEASE
     Dates: start: 20110301
  3. CRESTOR [Concomitant]
  4. XARELTO [Suspect]
     Indication: ATRIAL FIBRILLATION
     Route: 048
     Dates: start: 20120524, end: 20120526
  5. AMLODIPINE [Suspect]
     Indication: PRODUCT USED FOR UNKNOWN INDICATION
  6. ASPIRIN [Suspect]
     Indication: THROMBOSIS PROPHYLAXIS
     Dates: start: 20110301
  7. XARELTO [Suspect]
     Indication: CEREBROVASCULAR ACCIDENT PROPHYLAXIS
     Route: 048
     Dates: start: 20120524, end: 20120526
  8. ATACAND HCT [Suspect]
     Indication: PRODUCT USED FOR UNKNOWN INDICATION
  9. CORDARONE [Concomitant]

REACTIONS (5)
  - TRANSIENT ISCHAEMIC ATTACK [None]
  - ISCHAEMIC STROKE [None]
  - VISUAL FIELD DEFECT [None]
  - VERTEBRAL ARTERY THROMBOSIS [None]
  - CONJUNCTIVAL HAEMORRHAGE [None]
